FAERS Safety Report 17031675 (Version 1)
Quarter: 2019Q4

REPORT INFORMATION
  Report Type: Spontaneous
  Country: BR (occurrence: BR)
  Receive Date: 20191114
  Receipt Date: 20191114
  Transmission Date: 20200122
  Serious: Yes (Other)
  Sender: FDA-Public Use
  Company Number: BR-EMD SERONO-9127611

PATIENT
  Age: 59 Year
  Sex: Female

DRUGS (1)
  1. GLIFAGE [Suspect]
     Active Substance: METFORMIN HYDROCHLORIDE
     Indication: PRODUCT USED FOR UNKNOWN INDICATION
     Dosage: NEW FORMAT
     Route: 048
     Dates: end: 201911

REACTIONS (9)
  - Abdominal pain [Unknown]
  - Paraesthesia [Unknown]
  - Pyrexia [Unknown]
  - Headache [Unknown]
  - Paraesthesia oral [Unknown]
  - Drug intolerance [Unknown]
  - Myocardial infarction [Unknown]
  - Diarrhoea [Unknown]
  - Blood glucose increased [Unknown]

NARRATIVE: CASE EVENT DATE: 20191104
